FAERS Safety Report 6604387-0 (Version None)
Quarter: 2010Q1

REPORT INFORMATION
  Report Type: 
  Country: None (occurrence: None)
  Receive Date: 20100226
  Receipt Date: 20090916
  Transmission Date: 20100710
  Serious: No
  Sender: FDA-Public Use
  Company Number: A0807661A

PATIENT
  Age: 53 Year
  Sex: Female

DRUGS (4)
  1. LAMOTRIGINE [Suspect]
     Indication: BIPOLAR DISORDER
     Dosage: 400MG PER DAY
     Route: 048
     Dates: start: 20090910
  2. WELLBUTRIN [Concomitant]
  3. VYVANSE [Concomitant]
  4. RISPERDAL [Concomitant]

REACTIONS (2)
  - ABASIA [None]
  - DYSARTHRIA [None]
